FAERS Safety Report 16196968 (Version 1)
Quarter: 2019Q2

REPORT INFORMATION
  Report Type: Spontaneous
  Country: US (occurrence: US)
  Receive Date: 20190415
  Receipt Date: 20190415
  Transmission Date: 20190711
  Serious: No
  Sender: FDA-Public Use
  Company Number: US-PFIZER INC-2018255098

PATIENT
  Age: 42 Year
  Sex: Male
  Weight: 74.84 kg

DRUGS (21)
  1. LYRICA [Suspect]
     Active Substance: PREGABALIN
     Indication: DIABETIC NEUROPATHY
     Dosage: 150 MG, 2X/DAY (ONE IN MORNING AND ONE IN THE EVENING)
     Route: 048
     Dates: start: 20180620, end: 20180920
  2. LANTUS [Concomitant]
     Active Substance: INSULIN GLARGINE
     Dosage: 20 IU, DAILY (20 UNITS DAILY WHEN OFF INSULIN PUMP)
     Route: 058
  3. SYNTHROID [Concomitant]
     Active Substance: LEVOTHYROXINE SODIUM
     Dosage: 50 UG, 1X/DAY
     Route: 048
  4. SINGULAIR [Concomitant]
     Active Substance: MONTELUKAST SODIUM
     Dosage: 10 MG, 1X/DAY (TAKE 1 TABLET BY MOUTH DAILY AT BEDTIME)
     Route: 048
  5. PRILOSEC [Concomitant]
     Active Substance: OMEPRAZOLE MAGNESIUM
     Dosage: 20 MG, DAILY (TAKE 1 CAPSULE BY MOUTH EVERY DAY 30 MINUTES PRIOR TO BREAKFAST)
     Route: 048
  6. LOPROX [Concomitant]
     Active Substance: CICLOPIROX\CICLOPIROX OLAMINE
     Dosage: UNK, 1X/DAY (APPLY 1 APPLICATION TO AFFECTED AREA DAILY AT BEDTIME)
  7. FLONASE [Concomitant]
     Active Substance: FLUTICASONE PROPIONATE
     Dosage: UNK, 1X/DAY (USE TWO SPRAYS IN EACH NOSTRIL ONCE DAILY)
  8. VOLTAREN [Concomitant]
     Active Substance: DICLOFENAC SODIUM
     Dosage: 2 G, AS NEEDED (TO AFFECTED AREA FOUR TIMES DAILY AS NEEDED)
     Route: 061
  9. LIDODERM [Concomitant]
     Active Substance: LIDOCAINE
     Dosage: UNK, 1X/DAY (APPLY 3 PATCHES AS DIRECTED ONCE DAILY. REMOVE PATCH AFTER 12 HOURS)
  10. VITAMIN D [COLECALCIFEROL] [Concomitant]
     Active Substance: CHOLECALCIFEROL
     Dosage: 185 MG, 1X/DAY
     Route: 048
  11. ATIVAN [Concomitant]
     Active Substance: LORAZEPAM
     Dosage: 0.5 MG, AS NEEDED (TAKE 1 TABLET BY MOUTH THREE TIMES DAILY AS NEEDED FOR UP TO 30 DAYS
     Route: 048
  12. ASPIRIN 81 [Concomitant]
     Active Substance: ASPIRIN
     Dosage: 2 DF, DAILY
  13. CRESTOR [Concomitant]
     Active Substance: ROSUVASTATIN CALCIUM
     Dosage: 20 MG, 1X/DAY
     Route: 048
  14. HUMALOG [Concomitant]
     Active Substance: INSULIN LISPRO
     Dosage: UNK, 1X/DAY (DOSE BASED ON CARB INTAKE, MAX DOSE 70 UNITS PER DAY)
  15. ZESTRIL [Concomitant]
     Active Substance: LISINOPRIL
     Dosage: 10 MG, 1X/DAY
     Route: 048
  16. PRINIVIL [Concomitant]
     Active Substance: LISINOPRIL
     Dosage: 10 MG, 1X/DAY
     Route: 048
  17. LYRICA [Suspect]
     Active Substance: PREGABALIN
     Dosage: 75 MG, 2X/DAY
  18. ACETYL L CARNITINE ARGINATE + ALPHA LIPOIC ACID [Concomitant]
     Dosage: UNK, 2X/DAY
     Route: 048
  19. ASTELIN [Concomitant]
     Active Substance: AZELASTINE HYDROCHLORIDE
     Dosage: UNK, AS NEEDED (USE 1 SPRAY IN EACH NOSTRIL TWICE DAILY)
  20. CYMBALTA [Concomitant]
     Active Substance: DULOXETINE HYDROCHLORIDE
     Dosage: 30 MG, 1X/DAY
     Route: 048
  21. CYMBALTA [Concomitant]
     Active Substance: DULOXETINE HYDROCHLORIDE
     Dosage: 60 MG, 1X/DAY
     Route: 048

REACTIONS (4)
  - Neuralgia [Not Recovered/Not Resolved]
  - Condition aggravated [Not Recovered/Not Resolved]
  - Feeling abnormal [Not Recovered/Not Resolved]
  - Disturbance in attention [Not Recovered/Not Resolved]
